FAERS Safety Report 9552790 (Version 1)
Quarter: 2013Q2

REPORT INFORMATION
  Report Type: Spontaneous
  Country: US (occurrence: None)
  Receive Date: 20130507
  Receipt Date: 20130507
  Transmission Date: 20140414
  Serious: Yes (Other)
  Sender: FDA-Public Use
  Company Number: PHEH2012US017040

PATIENT
  Sex: Female
  Weight: 99.8 kg

DRUGS (5)
  1. TASIGNA [Suspect]
     Route: 048
  2. AMLODIPINE (AMLODIPINE) [Concomitant]
  3. ATENOLOL (ATENOLOL) [Concomitant]
  4. VITAMIN D (ERGOCALCIFEROL) [Concomitant]
  5. CALCIUM (CALCIUM) [Concomitant]

REACTIONS (4)
  - Blood pressure increased [None]
  - Migraine [None]
  - Fatigue [None]
  - Dizziness [None]
